FAERS Safety Report 4779708-4 (Version None)
Quarter: 2005Q3

REPORT INFORMATION
  Report Type: 
  Country: None (occurrence: None)
  Receive Date: 20050914
  Receipt Date: 20050623
  Transmission Date: 20060218
  Serious: Yes (Hospitalization)
  Sender: FDA-Public Use
  Company Number: 163-20785-05060363

PATIENT
  Age: 68 Year
  Sex: Female

DRUGS (17)
  1. THALOMID [Suspect]
     Indication: MULTIPLE MYELOMA
     Dosage: 50 MG, DAILY, ORAL
     Route: 048
     Dates: start: 20050107, end: 20050101
  2. THALOMID [Suspect]
     Indication: MULTIPLE MYELOMA
     Dosage: 50 MG, DAILY, ORAL
     Route: 048
     Dates: start: 20050304, end: 20050509
  3. MELPHALAN (MELPHALAN) [Suspect]
     Indication: MULTIPLE MYELOMA
     Dosage: 330 MG, DAILY, INTRAVENOUS; INTRAVENOUS
     Route: 042
     Dates: start: 20050216, end: 20050216
  4. MELPHALAN (MELPHALAN) [Suspect]
     Indication: MULTIPLE MYELOMA
     Dosage: 330 MG, DAILY, INTRAVENOUS; INTRAVENOUS
     Route: 042
     Dates: start: 20050513, end: 20050513
  5. DEXAMETHASONE [Suspect]
     Indication: MULTIPLE MYELOMA
  6. VELCADE [Suspect]
     Indication: MULTIPLE MYELOMA
     Dates: start: 20041201
  7. ADRIAMYCIN PFS [Suspect]
     Indication: MULTIPLE MYELOMA
     Dates: start: 20041201
  8. CISPLATIN [Suspect]
     Indication: MULTIPLE MYELOMA
     Dates: start: 20041201
  9. CYCLOPHOSPHAMIDE [Suspect]
     Indication: MULTIPLE MYELOMA
     Dates: start: 20041201
  10. ETOPOSIDE [Suspect]
     Indication: MULTIPLE MYELOMA
     Dates: start: 20041201
  11. ATARAX [Concomitant]
  12. ZYRTEC [Concomitant]
  13. LOVENOX [Concomitant]
  14. AMBISOME [Concomitant]
  15. PEPCID [Concomitant]
  16. ZOLOFT [Concomitant]
  17. ROBITUSSIN (GUAIFENESIN) [Concomitant]

REACTIONS (5)
  - DIARRHOEA [None]
  - PNEUMONIA PARAINFLUENZAE VIRAL [None]
  - PYREXIA [None]
  - RASH [None]
  - SINUSITIS [None]
